FAERS Safety Report 4967894-2 (Version None)
Quarter: 2006Q2

REPORT INFORMATION
  Report Type: 
  Country: None (occurrence: None)
  Receive Date: 20060404
  Receipt Date: 20060322
  Transmission Date: 20061013
  Serious: Yes (Hospitalization)
  Sender: FDA-Public Use
  Company Number: 223444

PATIENT
  Age: 71 Year
  Sex: Female

DRUGS (2)
  1. ACTIVASE [Suspect]
     Indication: MYOCARDIAL ISCHAEMIA
     Dosage: 63 MG, INTRAVENOUS
     Route: 042
     Dates: start: 20060314, end: 20060314
  2. NITRO (NITROGLYCERIN) [Concomitant]

REACTIONS (4)
  - DYSARTHRIA [None]
  - DYSPHAGIA [None]
  - GINGIVITIS [None]
  - SWOLLEN TONGUE [None]
